FAERS Safety Report 7617922-0 (Version None)
Quarter: 2011Q3

REPORT INFORMATION
  Report Type: 
  Country: None (occurrence: None)
  Receive Date: 20110718
  Receipt Date: 20110704
  Transmission Date: 20111222
  Serious: Yes (Other)
  Sender: FDA-Public Use
  Company Number: PHHY2011ZA59903

PATIENT
  Age: 50 Year
  Sex: Female

DRUGS (6)
  1. ZOLEDRONOC ACID [Suspect]
     Indication: OSTEOPOROSIS
     Dosage: 5 MG/100 ML
     Route: 042
  2. SERETIDE [Concomitant]
     Indication: ASTHMA
  3. VENTEZE [Concomitant]
     Indication: ASTHMA
  4. ANGELIQ [Concomitant]
     Indication: HORMONE REPLACEMENT THERAPY
  5. IBRUPROFEN [Concomitant]
     Indication: PAIN
  6. PANADO [Concomitant]
     Indication: PAIN

REACTIONS (7)
  - PAIN [None]
  - BONE PAIN [None]
  - RIB FRACTURE [None]
  - MYALGIA [None]
  - MUSCULOSKELETAL DISCOMFORT [None]
  - PAIN IN EXTREMITY [None]
  - MUSCULOSKELETAL PAIN [None]
